FAERS Safety Report 7267124-5 (Version None)
Quarter: 2011Q1

REPORT INFORMATION
  Report Type: 
  Country: None (occurrence: None)
  Receive Date: 20110201
  Receipt Date: 20110128
  Transmission Date: 20110831
  Serious: Yes (Death, Hospitalization)
  Sender: FDA-Public Use
  Company Number: DE-JNJFOC-20061102831

PATIENT
  Sex: Male
  Weight: 95.03 kg

DRUGS (10)
  1. DECORTIN [Concomitant]
     Indication: ILL-DEFINED DISORDER
     Route: 048
  2. OLMESARTAN MEDOXOMIL [Concomitant]
     Indication: ILL-DEFINED DISORDER
     Route: 048
  3. TORSEMIDE [Concomitant]
     Indication: ILL-DEFINED DISORDER
     Route: 048
  4. SUNITINIB MALATE [Suspect]
     Indication: METASTATIC RENAL CELL CARCINOMA
  5. SAB SIMPLEX [Concomitant]
     Indication: ILL-DEFINED DISORDER
     Route: 048
  6. DURAGESIC-100 [Suspect]
     Indication: PRODUCT USED FOR UNKNOWN INDICATION
     Route: 062
     Dates: start: 20051101, end: 20060308
  7. NEOSTIGMIN [Concomitant]
     Indication: ILL-DEFINED DISORDER
     Route: 065
  8. ENOXAPARIN [Concomitant]
     Indication: ILL-DEFINED DISORDER
     Route: 058
  9. CLEMASTINE FUMARATE [Concomitant]
     Indication: SEDATION
     Route: 065
  10. FORMOTEROL FUMARATE [Concomitant]
     Indication: ILL-DEFINED DISORDER
     Route: 055

REACTIONS (1)
  - ILEUS PARALYTIC [None]
